FAERS Safety Report 20951994 (Version 9)
Quarter: 2022Q4

REPORT INFORMATION
  Report Type: Report from Study
  Country: JP (occurrence: JP)
  Receive Date: 20220613
  Receipt Date: 20221206
  Transmission Date: 20230113
  Serious: Yes (Hospitalization)
  Sender: FDA-Public Use
  Company Number: JP-TAKEDA-2022TJP054919

PATIENT

DRUGS (14)
  1. CABOZANTINIB [Suspect]
     Active Substance: CABOZANTINIB
     Indication: Renal cell carcinoma
     Dosage: 60 MG, QD
     Route: 048
     Dates: start: 20220420, end: 20220527
  2. METGLUCO [Concomitant]
     Active Substance: METFORMIN HYDROCHLORIDE
     Indication: Type 2 diabetes mellitus
     Dosage: 500 MG, TID
     Route: 048
  3. CRESTOR [Concomitant]
     Active Substance: ROSUVASTATIN CALCIUM
     Indication: Type 2 diabetes mellitus
     Dosage: UNK
     Route: 048
  4. ROSUVASTATIN CALCIUM [Concomitant]
     Active Substance: ROSUVASTATIN CALCIUM
     Indication: Hypercholesterolaemia
     Dosage: 2.5 MG, QD
     Route: 048
  5. ACTOS [Concomitant]
     Active Substance: PIOGLITAZONE HYDROCHLORIDE
     Indication: Type 2 diabetes mellitus
     Dosage: 30 MG, QD
     Route: 048
  6. AMARYL [Concomitant]
     Active Substance: GLIMEPIRIDE
     Indication: Type 2 diabetes mellitus
     Dosage: 4 MG
     Route: 048
  7. TRICHLORMETHIAZIDE [Concomitant]
     Active Substance: TRICHLORMETHIAZIDE
     Indication: Type 2 diabetes mellitus
     Dosage: 2 MG, QD
     Route: 048
  8. TRICHLORMETHIAZIDE [Concomitant]
     Active Substance: TRICHLORMETHIAZIDE
     Indication: Hypertension
     Dosage: 2 MG, QD
     Route: 048
  9. CORTRIL [Concomitant]
     Active Substance: HYDROCORTISONE
     Indication: Blood corticotrophin decreased
     Dosage: 15 MG, BID
     Route: 048
     Dates: start: 20210816
  10. LEVOTHYROXINE [Concomitant]
     Active Substance: LEVOTHYROXINE
     Indication: Primary hypothyroidism
     Dosage: 75 UG, QD
     Route: 048
     Dates: start: 20211222
  11. DEXAMETHASONE [Concomitant]
     Active Substance: DEXAMETHASONE
     Indication: Stomatitis
     Dosage: UNK
     Route: 050
     Dates: start: 20220524
  12. HEPARINOID [Concomitant]
     Indication: Palmar-plantar erythrodysaesthesia syndrome
     Dosage: UNK
     Route: 062
     Dates: start: 20220524
  13. DIFLUPREDNATE [Concomitant]
     Active Substance: DIFLUPREDNATE
     Indication: Palmar-plantar erythrodysaesthesia syndrome
     Dosage: UNK, BID
     Route: 062
     Dates: start: 20220526
  14. INSULIN NOS [Concomitant]
     Active Substance: INSULIN NOS
     Indication: Type 2 diabetes mellitus
     Dosage: UNK
     Route: 058
     Dates: start: 201909

REACTIONS (8)
  - Acute respiratory failure [Recovered/Resolved]
  - Cardiomyopathy [Not Recovered/Not Resolved]
  - Malaise [Recovered/Resolved]
  - Stomatitis [Not Recovered/Not Resolved]
  - Palmar-plantar erythrodysaesthesia syndrome [Not Recovered/Not Resolved]
  - Diarrhoea [Not Recovered/Not Resolved]
  - Toothache [Not Recovered/Not Resolved]
  - Headache [Not Recovered/Not Resolved]

NARRATIVE: CASE EVENT DATE: 20220426
